FAERS Safety Report 16870074 (Version 2)
Quarter: 2019Q4

REPORT INFORMATION
  Report Type: Spontaneous
  Country: CZ (occurrence: CZ)
  Receive Date: 20190930
  Receipt Date: 20191023
  Transmission Date: 20200122
  Serious: Yes (Other)
  Sender: FDA-Public Use
  Company Number: PHHY2019CZ223618

PATIENT
  Sex: Female

DRUGS (2)
  1. GILENYA [Suspect]
     Active Substance: FINGOLIMOD HYDROCHLORIDE
     Indication: MULTIPLE SCLEROSIS
     Dosage: UNK
     Route: 065
     Dates: end: 2013
  2. GILENYA [Suspect]
     Active Substance: FINGOLIMOD HYDROCHLORIDE
     Dosage: UNK
     Route: 065
     Dates: end: 201806

REACTIONS (7)
  - Quadriplegia [Recovering/Resolving]
  - Rebound effect [Unknown]
  - Paraparesis [Not Recovered/Not Resolved]
  - Hemiparesis [Unknown]
  - Lymphopenia [Unknown]
  - Sensory disturbance [Unknown]
  - Multiple sclerosis relapse [Unknown]
